FAERS Safety Report 4305538-3 (Version None)
Quarter: 2004Q1

REPORT INFORMATION
  Report Type: 
  Country: None (occurrence: None)
  Receive Date: 20040226
  Receipt Date: 20031118
  Transmission Date: 20041129
  Serious: No
  Sender: FDA-Public Use
  Company Number: US-BRISTOL-MYERS SQUIBB COMPANY-12438545

PATIENT
  Age: 10 Year
  Sex: Female

DRUGS (2)
  1. ABILIFY [Suspect]
     Dosage: INITIAL DOSE: 5 MG/DAY
     Route: 048
  2. SEROQUEL [Concomitant]

REACTIONS (2)
  - EYE ROLLING [None]
  - TACHYCARDIA [None]
